FAERS Safety Report 11499233 (Version 2)
Quarter: 2015Q3

REPORT INFORMATION
  Report Type: Spontaneous
  Country: US (occurrence: US)
  Receive Date: 20150913
  Receipt Date: 20150923
  Transmission Date: 20151125
  Serious: No
  Sender: FDA-Public Use
  Company Number: US-009507513-1509USA005294

PATIENT
  Age: 28 Year
  Sex: Female

DRUGS (1)
  1. NEXPLANON [Suspect]
     Active Substance: ETONOGESTREL
     Dosage: 1 ROD
     Route: 059

REACTIONS (7)
  - Device breakage [Not Recovered/Not Resolved]
  - Menstruation irregular [Unknown]
  - Implant site fibrosis [Unknown]
  - Product quality issue [Unknown]
  - Contraindicated drug administered [Unknown]
  - Device difficult to use [Not Recovered/Not Resolved]
  - Device deployment issue [Not Recovered/Not Resolved]

NARRATIVE: CASE EVENT DATE: 20150909
